FAERS Safety Report 5679835-3 (Version None)
Quarter: 2008Q1

REPORT INFORMATION
  Report Type: 
  Country: None (occurrence: None)
  Receive Date: 20080321
  Receipt Date: 20080311
  Transmission Date: 20080703
  Serious: Yes (Hospitalization)
  Sender: FDA-Public Use
  Company Number: 2008-173442-NL

PATIENT
  Age: 26 Year
  Sex: Female

DRUGS (1)
  1. NUVARING [Suspect]
     Indication: CONTRACEPTION
     Dosage: DF
     Route: 067
     Dates: start: 20070101

REACTIONS (4)
  - ABORTION INDUCED [None]
  - BENIGN HYDATIDIFORM MOLE [None]
  - PREGNANCY WITH CONTRACEPTIVE DEVICE [None]
  - TREATMENT NONCOMPLIANCE [None]
